FAERS Safety Report 5263977-0 (Version None)
Quarter: 2007Q1

REPORT INFORMATION
  Report Type: 
  Country: None (occurrence: None)
  Receive Date: 20070313
  Receipt Date: 20070312
  Transmission Date: 20070707
  Serious: Yes (Death)
  Sender: FDA-Public Use
  Company Number: DEWYE396929JAN07

PATIENT
  Sex: Female
  Weight: 64 kg

DRUGS (4)
  1. VENLAFAXINE HCL [Suspect]
     Indication: DEPRESSION
     Dosage: 300 MG PER DAY
     Dates: start: 20060701
  2. ZOPICLONE [Concomitant]
     Dosage: 7.5 MG PER DAY
  3. ALLOPURINOL [Concomitant]
     Dosage: 300 MG PER DAY
  4. MIRTAZAPINE [Concomitant]
     Indication: DEPRESSION
     Dosage: 30 MG PER DAY
     Dates: start: 20061101

REACTIONS (1)
  - CARDIAC FAILURE [None]
